FAERS Safety Report 16452804 (Version 2)
Quarter: 2019Q3

REPORT INFORMATION
  Report Type: Spontaneous
  Country: JP (occurrence: JP)
  Receive Date: 20190619
  Receipt Date: 20190701
  Transmission Date: 20191004
  Serious: Yes (Other)
  Sender: FDA-Public Use
  Company Number: JP-UCBSA-2019025095

PATIENT
  Sex: Female

DRUGS (2)
  1. E KEPPRA [Suspect]
     Active Substance: LEVETIRACETAM
     Dosage: 2500 MILLIGRAM PER DAY
     Route: 048
  2. E KEPPRA [Suspect]
     Active Substance: LEVETIRACETAM
     Indication: EPILEPSY
     Dosage: UNK
     Route: 048
     Dates: start: 201803

REACTIONS (6)
  - Nasal congestion [Unknown]
  - Dizziness [Unknown]
  - Asthma [Unknown]
  - Thunderclap headache [Unknown]
  - Dyspnoea [Unknown]
  - Nausea [Unknown]
